FAERS Safety Report 18255518 (Version 4)
Quarter: 2020Q4

REPORT INFORMATION
  Report Type: Report from Study
  Country: MX (occurrence: MX)
  Receive Date: 20200910
  Receipt Date: 20201211
  Transmission Date: 20210113
  Serious: Yes (Other)
  Sender: FDA-Public Use
  Company Number: MX-SEATTLE GENETICS-2020SGN03941

PATIENT
  Sex: Female
  Weight: 58 kg

DRUGS (1)
  1. BRENTUXIMAB VEDOTIN [Suspect]
     Active Substance: BRENTUXIMAB VEDOTIN
     Indication: HODGKIN^S DISEASE
     Dosage: 104 MILLIGRAM
     Route: 042
     Dates: start: 20200821

REACTIONS (5)
  - Nausea [Unknown]
  - Depressed mood [Unknown]
  - Hodgkin^s disease recurrent [Unknown]
  - Mucosal inflammation [Unknown]
  - Venous thrombosis [Unknown]
